FAERS Safety Report 8311928-4 (Version None)
Quarter: 2012Q1

REPORT INFORMATION
  Report Type: 
  Country: None (occurrence: None)
  Receive Date: 20120315
  Receipt Date: 20110603
  Transmission Date: 20120608
  Serious: Yes (Other)
  Sender: FDA-Public Use
  Company Number: PHHY2011US42338

PATIENT
  Age: 44 Year
  Sex: Female

DRUGS (4)
  1. AMPYRA [Concomitant]
  2. AMINOPYRIDINE (FAMPRIDINE) [Concomitant]
  3. REBIF [Suspect]
     Dosage: UNK UKN, UNK
  4. GILENYA [Suspect]
     Indication: MULTIPLE SCLEROSIS
     Dosage: 0.5 MG, DAILY, ORAL
     Route: 048
     Dates: start: 20110510, end: 20110516

REACTIONS (12)
  - ASTHENIA [None]
  - FATIGUE [None]
  - DIZZINESS [None]
  - MEMORY IMPAIRMENT [None]
  - DEPRESSION [None]
  - CRYING [None]
  - ANGER [None]
  - MULTIPLE SCLEROSIS RELAPSE [None]
  - MOOD ALTERED [None]
  - PARAESTHESIA [None]
  - GAIT DISTURBANCE [None]
  - MYALGIA [None]
